FAERS Safety Report 8433881-5 (Version None)
Quarter: 2012Q2

REPORT INFORMATION
  Report Type: 
  Country: None (occurrence: None)
  Receive Date: 20120613
  Receipt Date: 20120607
  Transmission Date: 20120825
  Serious: Yes (Death, Hospitalization)
  Sender: FDA-Public Use
  Company Number: ES-PFIZER INC-2012137926

PATIENT

DRUGS (1)
  1. SOMATROPIN RDNA [Suspect]

REACTIONS (2)
  - SEPSIS [None]
  - PYREXIA [None]
